FAERS Safety Report 7446551-7 (Version None)
Quarter: 2011Q2

REPORT INFORMATION
  Report Type: 
  Country: None (occurrence: None)
  Receive Date: 20110429
  Receipt Date: 20110408
  Transmission Date: 20111010
  Serious: Yes (Disabling, Other)
  Sender: FDA-Public Use
  Company Number: JP-PFIZER INC-2011083049

PATIENT
  Age: 44 Year
  Sex: Female

DRUGS (3)
  1. THERADIA-C-PASTA [Concomitant]
     Dosage: 15 G, 1X/DAY
     Dates: start: 20110324, end: 20110324
  2. THERADIA-C-PASTA [Concomitant]
     Indication: INFECTION PROPHYLAXIS
     Dosage: 15 G, 1X/DAY
     Dates: start: 20110317, end: 20110318
  3. BANAN [Suspect]
     Indication: INFECTION PROPHYLAXIS
     Dosage: 100 MG, 1X/DAY
     Route: 048
     Dates: start: 20110318, end: 20110319

REACTIONS (2)
  - VIITH NERVE PARALYSIS [None]
  - STOMATITIS [None]
